FAERS Safety Report 13885950 (Version 5)
Quarter: 2018Q1

REPORT INFORMATION
  Report Type: Report from Study
  Country: CA (occurrence: CA)
  Receive Date: 20170821
  Receipt Date: 20180302
  Transmission Date: 20180508
  Serious: Yes (Other)
  Sender: FDA-Public Use
  Company Number: CA-GLAXOSMITHKLINE-CA2017GSK122275

PATIENT
  Age: 62 Year
  Sex: Female

DRUGS (1)
  1. MEPOLIZUMAB [Suspect]
     Active Substance: MEPOLIZUMAB
     Indication: ASTHMA
     Dosage: 100 MG, CYC, MONTHLY
     Route: 042
     Dates: start: 20170724

REACTIONS (8)
  - Back pain [Unknown]
  - Cystitis [Unknown]
  - Micturition disorder [Unknown]
  - Blister [Unknown]
  - Wheezing [Unknown]
  - Abdominal pain [Unknown]
  - Herpes zoster [Unknown]
  - Diverticulitis [Unknown]

NARRATIVE: CASE EVENT DATE: 20170809
